FAERS Safety Report 11879660 (Version 1)
Quarter: 2015Q4

REPORT INFORMATION
  Report Type: Report from Study
  Country: US (occurrence: US)
  Receive Date: 20151230
  Receipt Date: 20151230
  Transmission Date: 20160305
  Serious: No
  Sender: FDA-Public Use
  Company Number: US-AEGERION PHARMACEUTICAL INC.-AEGR002251

PATIENT

DRUGS (21)
  1. ANDROGEL [Concomitant]
     Active Substance: TESTOSTERONE
     Indication: HYPOGONADISM MALE
     Dosage: 20.25 MG/ACT,QD
     Route: 061
     Dates: start: 20140908
  2. ZETIA [Concomitant]
     Active Substance: EZETIMIBE
     Indication: HYPERLIPIDAEMIA
     Dosage: 10 MG, QD
     Route: 048
     Dates: start: 20131219
  3. JUXTAPID [Suspect]
     Active Substance: LOMITAPIDE MESYLATE
     Indication: TYPE IIA HYPERLIPIDAEMIA
     Dosage: 5 MG, UNK
     Route: 048
     Dates: start: 20140109, end: 20140310
  4. AFRIN [Concomitant]
     Active Substance: OXYMETAZOLINE
     Indication: SEASONAL ALLERGY
     Dosage: 2 DF, PRN
     Route: 045
     Dates: start: 20140616
  5. AMLODIPINE BESYLATE. [Concomitant]
     Active Substance: AMLODIPINE BESYLATE
     Indication: VASOSPASM
     Dosage: 2.5 MG, QD
     Route: 048
     Dates: start: 20141022
  6. METAXALONE. [Concomitant]
     Active Substance: METAXALONE
     Indication: BACK PAIN
     Dosage: 800 MG, PRN
     Route: 048
     Dates: start: 2014
  7. TIZANIDINE. [Concomitant]
     Active Substance: TIZANIDINE
     Indication: BACK PAIN
     Dosage: 4 MG, BID
     Route: 048
     Dates: start: 20140808
  8. BOSWELLIA SERRATA GUM W/CETYL MYRISTOLEATE/CHONDROITIN SULFATE/CURCUMA [Concomitant]
     Indication: ARTHRITIS
     Dosage: 375 MG, BID
     Route: 048
     Dates: start: 20140801
  9. GABAPENTIN. [Concomitant]
     Active Substance: GABAPENTIN
     Indication: BACK PAIN
     Dosage: 300 MG, TID
     Route: 048
     Dates: start: 20140401
  10. JANUVIA [Concomitant]
     Active Substance: SITAGLIPTIN PHOSPHATE
     Indication: DIABETES MELLITUS
     Dosage: 100 MG, QD
     Route: 048
     Dates: start: 20130730
  11. NYSTATIN-TRIAMCINOLONE [Concomitant]
     Indication: TINEA CRURIS
     Dosage: 1 UNK, TID
     Route: 061
     Dates: start: 20131226
  12. PROAIR HFA [Concomitant]
     Active Substance: ALBUTEROL SULFATE
     Indication: ASTHMA
     Dosage: 108 MCG/ACT, PRN
     Route: 055
     Dates: start: 20140908
  13. JUXTAPID [Suspect]
     Active Substance: LOMITAPIDE MESYLATE
     Dosage: 5 MG, QD
     Route: 048
     Dates: start: 20140915, end: 20151103
  14. CELEBREX [Concomitant]
     Active Substance: CELECOXIB
     Indication: PAIN IN EXTREMITY
     Dosage: 200 MG, QD
     Route: 048
     Dates: start: 20121213
  15. ASPIRIN. [Concomitant]
     Active Substance: ASPIRIN
     Indication: HYPERLIPIDAEMIA
     Dosage: 81 MG, QD
     Route: 048
     Dates: start: 20140908
  16. FLUTICASONE PROPIONATE. [Concomitant]
     Active Substance: FLUTICASONE PROPIONATE
     Indication: RESPIRATORY TRACT INFECTION
     Dosage: 50 MCG, BID
     Route: 045
     Dates: start: 20131226
  17. LORATADINE. [Concomitant]
     Active Substance: LORATADINE
     Indication: SEASONAL ALLERGY
     Dosage: 10 MG, QD
     Route: 048
     Dates: start: 20141103
  18. NIACIN ER [Concomitant]
     Active Substance: NIACIN
     Indication: HYPERCHOLESTEROLAEMIA
     Dosage: 500 MG, QD AT HS
     Route: 048
     Dates: start: 20140908
  19. GLIMEPIRIDE. [Concomitant]
     Active Substance: GLIMEPIRIDE
     Indication: DIABETES MELLITUS
     Dosage: 2 MG, BID
     Route: 048
     Dates: start: 20130730
  20. PANTOPRAZOLE SODIUM. [Concomitant]
     Active Substance: PANTOPRAZOLE SODIUM
     Indication: GASTROOESOPHAGEAL REFLUX DISEASE
     Dosage: 40 MG, QD
     Route: 048
     Dates: start: 20140620
  21. VASCEPA [Concomitant]
     Active Substance: ICOSAPENT ETHYL
     Indication: HYPERLIPIDAEMIA
     Dosage: 2 G, BID
     Route: 048
     Dates: start: 20140724

REACTIONS (2)
  - Therapy cessation [Not Recovered/Not Resolved]
  - Oral pain [Not Recovered/Not Resolved]

NARRATIVE: CASE EVENT DATE: 20150524
